FAERS Safety Report 4777419-2 (Version None)
Quarter: 2005Q3

REPORT INFORMATION
  Report Type: 
  Country: None (occurrence: None)
  Receive Date: 20050923
  Receipt Date: 20050207
  Transmission Date: 20060218
  Serious: Yes (Other)
  Sender: FDA-Public Use
  Company Number: PHEH2005US01797

PATIENT
  Age: 39 Year
  Sex: Male

DRUGS (2)
  1. ZOMETA [Suspect]
     Indication: OSTEOPOROSIS
     Dosage: 4 MG, QMO
     Dates: start: 20021210, end: 20040923
  2. AREDIA [Suspect]
     Indication: OSTEOPOROSIS
     Dosage: 90 MG, QMO
     Dates: start: 19970827, end: 20021010

REACTIONS (7)
  - DEEP VEIN THROMBOSIS [None]
  - JAW DISORDER [None]
  - OSTEONECROSIS [None]
  - PULMONARY EMBOLISM [None]
  - SOFT TISSUE DISORDER [None]
  - TOOTH EXTRACTION [None]
  - WOUND DEBRIDEMENT [None]
